FAERS Safety Report 4744729-4 (Version None)
Quarter: 2005Q3

REPORT INFORMATION
  Report Type: 
  Country: None (occurrence: None)
  Receive Date: 20050815
  Receipt Date: 20050804
  Transmission Date: 20060218
  Serious: Yes (Other)
  Sender: FDA-Public Use
  Company Number: 2005AP04323

PATIENT
  Sex: Female

DRUGS (2)
  1. IRESSA [Suspect]
     Route: 048
  2. IRESSA [Suspect]
     Route: 048

REACTIONS (2)
  - RASH [None]
  - VISUAL ACUITY REDUCED [None]
